FAERS Safety Report 5176666-8 (Version None)
Quarter: 2006Q4

REPORT INFORMATION
  Report Type: 
  Country: None (occurrence: None)
  Receive Date: 20061216
  Receipt Date: 20061208
  Transmission Date: 20070319
  Serious: Yes (Death)
  Sender: FDA-Public Use
  Company Number: FR-ABBOTT-06P-056-0352846-00

PATIENT
  Age: 79 Year
  Sex: Female

DRUGS (6)
  1. DEPAKOTE [Suspect]
     Indication: DRUG USE FOR UNKNOWN INDICATION
     Route: 048
  2. DILTIAZEM HYDROCHLORIDE [Suspect]
     Indication: DRUG USE FOR UNKNOWN INDICATION
     Route: 048
  3. PIRIBEDIL [Suspect]
     Indication: DRUG USE FOR UNKNOWN INDICATION
     Route: 048
  4. INSULIN LISPRO [Suspect]
     Indication: DIABETES MELLITUS
     Route: 058
  5. HUMALOG MIX 25 [Suspect]
     Indication: DIABETES MELLITUS
     Route: 058
  6. INFLUENZA VIRUS VACCINE POLYVALENT [Suspect]
     Indication: INFLUENZA IMMUNISATION
     Route: 058
     Dates: start: 20061106, end: 20061106

REACTIONS (3)
  - GASTROOESOPHAGEAL REFLUX DISEASE [None]
  - MYOCARDIAL INFARCTION [None]
  - NAUSEA [None]
